FAERS Safety Report 7648958-1 (Version None)
Quarter: 2011Q3

REPORT INFORMATION
  Report Type: 
  Country: None (occurrence: None)
  Receive Date: 20110802
  Receipt Date: 20110722
  Transmission Date: 20111222
  Serious: Yes (Other)
  Sender: FDA-Public Use
  Company Number: NL-AMGEN-NLDSP2011027918

PATIENT
  Age: 57 Year
  Sex: Female

DRUGS (2)
  1. ALENDRONIC ACID [Concomitant]
     Dosage: UNK
  2. ENBREL [Suspect]
     Indication: RHEUMATOID ARTHRITIS
     Dosage: 50 MG, WEEKLY
     Dates: start: 20101216

REACTIONS (2)
  - WEIGHT INCREASED [None]
  - JOINT DISLOCATION [None]
